FAERS Safety Report 4729444-5 (Version None)
Quarter: 2005Q3

REPORT INFORMATION
  Report Type: 
  Country: None (occurrence: None)
  Receive Date: 20050728
  Receipt Date: 20050720
  Transmission Date: 20060218
  Serious: Yes (Hospitalization)
  Sender: FDA-Public Use
  Company Number: US015657

PATIENT
  Age: 31 Year
  Sex: Female

DRUGS (2)
  1. GABITRIL [Suspect]
  2. RISPERDAL [Concomitant]

REACTIONS (2)
  - CONVULSION [None]
  - TACHYCARDIA [None]
